FAERS Safety Report 6819676-4 (Version None)
Quarter: 2010Q3

REPORT INFORMATION
  Report Type: 
  Country: None (occurrence: None)
  Receive Date: 20100707
  Receipt Date: 20100630
  Transmission Date: 20110219
  Serious: Yes (Hospitalization, Other)
  Sender: FDA-Public Use
  Company Number: JP-BRISTOL-MYERS SQUIBB COMPANY-15173263

PATIENT
  Age: 8 Decade

DRUGS (1)
  1. MAXIPIME [Suspect]
     Indication: URINARY TRACT INFECTION
     Route: 041
     Dates: start: 20100621, end: 20100101

REACTIONS (2)
  - ALTERED STATE OF CONSCIOUSNESS [None]
  - RENAL FAILURE [None]
